FAERS Safety Report 4483807-4 (Version None)
Quarter: 2004Q4

REPORT INFORMATION
  Report Type: 
  Country: None (occurrence: None)
  Receive Date: 20041025
  Receipt Date: 20040429
  Transmission Date: 20050328
  Serious: Yes (Other)
  Sender: FDA-Public Use
  Company Number: US-ABBOTT-04P-163-0259190-00

PATIENT
  Sex: Female
  Weight: 68.1 kg

DRUGS (21)
  1. HUMIRA [Suspect]
     Indication: ANKYLOSING SPONDYLITIS
     Route: 058
     Dates: start: 20040121, end: 20040405
  2. HUMIRA [Suspect]
     Route: 058
     Dates: start: 20030901, end: 20040120
  3. HUMIRA [Suspect]
     Route: 058
     Dates: start: 20030201, end: 20030901
  4. BUPROPION HYDROCHLORIDE [Concomitant]
     Indication: DEPRESSION
  5. NEFAZODONE HYDROCHLORIDE [Concomitant]
     Indication: DEPRESSION
  6. CLONAZEPAM [Concomitant]
     Indication: INSOMNIA
  7. TOLECTIN [Concomitant]
     Indication: ANKYLOSING SPONDYLITIS
     Dates: start: 20010401, end: 20031201
  8. SULFASALAZINE [Concomitant]
     Indication: INFLAMMATORY BOWEL DISEASE
     Route: 048
     Dates: start: 20010901, end: 20031201
  9. PENTASSA [Concomitant]
     Indication: INFLAMMATORY BOWEL DISEASE
     Dates: start: 20031201
  10. GABAPENTIN [Concomitant]
     Indication: PAIN MANAGEMENT
     Dates: start: 20020101
  11. TIZANIDINE HYDROCHLORIDE [Concomitant]
     Indication: MUSCLE RELAXANT THERAPY
     Dates: start: 20020501
  12. CYPROHEPTADINE HYDROCHLORIDE [Concomitant]
     Indication: DRUG USE FOR UNKNOWN INDICATION
     Dates: start: 20030201
  13. LANSOPRAZOLE [Concomitant]
     Indication: DYSPEPSIA
     Dates: start: 20030901
  14. CEFATRIZINE PROPYLENGLYCOLATE SULFATE [Concomitant]
     Indication: ABDOMINAL PAIN
     Dates: start: 20030901
  15. BUCINDOLOL HYDROCHLORIDE [Concomitant]
     Indication: ANKYLOSING SPONDYLITIS
     Dates: start: 20031201
  16. PROPACET 100 [Concomitant]
     Indication: PAIN
     Dates: start: 20031201
  17. INFLIXIMAB [Concomitant]
     Indication: ANKYLOSING SPONDYLITIS
     Dates: start: 20030901, end: 20030901
  18. AMANTADINE HCL [Concomitant]
     Indication: DRUG USE FOR UNKNOWN INDICATION
  19. METAXALONE [Concomitant]
     Indication: DRUG USE FOR UNKNOWN INDICATION
  20. BETASERON [Concomitant]
     Indication: DRUG USE FOR UNKNOWN INDICATION
  21. RANITIDINE HYDROCHLORIDE [Concomitant]
     Indication: DRUG USE FOR UNKNOWN INDICATION

REACTIONS (2)
  - HEADACHE [None]
  - MULTIPLE SCLEROSIS [None]
